FAERS Safety Report 21618769 (Version 1)
Quarter: 2022Q4

REPORT INFORMATION
  Report Type: Spontaneous
  Country: US (occurrence: US)
  Receive Date: 20221119
  Receipt Date: 20221119
  Transmission Date: 20230112
  Serious: No
  Sender: FDA-Public Use
  Company Number: USCollegium2022-000147

PATIENT

DRUGS (4)
  1. BELBUCA [Suspect]
     Active Substance: BUPRENORPHINE HYDROCHLORIDE
     Indication: Pain
     Dosage: 75 MICROGRAM, BID
     Route: 002
     Dates: start: 2019, end: 2019
  2. BELBUCA [Suspect]
     Active Substance: BUPRENORPHINE HYDROCHLORIDE
     Dosage: 2 FILMS, 150 MICROGRAM, BID
     Route: 002
     Dates: start: 20220801
  3. IBUPROFEN [Concomitant]
     Active Substance: IBUPROFEN
     Indication: Product used for unknown indication
     Dosage: UNK, PRN
  4. ALPRAZOLAM [Concomitant]
     Active Substance: ALPRAZOLAM
     Indication: Product used for unknown indication
     Dosage: UNK, PRN

REACTIONS (12)
  - Drug ineffective [Unknown]
  - Migraine [Not Recovered/Not Resolved]
  - Swelling face [Not Recovered/Not Resolved]
  - Vomiting [Not Recovered/Not Resolved]
  - Diarrhoea [Not Recovered/Not Resolved]
  - Nausea [Not Recovered/Not Resolved]
  - Product size issue [Unknown]
  - Product use complaint [Unknown]
  - Product packaging issue [Unknown]
  - Product packaging difficult to open [Unknown]
  - Product physical consistency issue [Unknown]
  - Product physical issue [Unknown]
